FAERS Safety Report 9004799 (Version 1)
Quarter: 2013Q1

REPORT INFORMATION
  Report Type: Spontaneous
  Country: US (occurrence: None)
  Receive Date: 20130107
  Receipt Date: 20130107
  Transmission Date: 20140127
  Serious: Yes (Other)
  Sender: FDA-Public Use
  Company Number: None

PATIENT
  Age: 74 Year
  Sex: Female
  Weight: 51.26 kg

DRUGS (1)
  1. RECLAST [Suspect]
     Indication: OSTEOPOROSIS
     Dosage: 5 MG YEARLY IV
     Route: 042
     Dates: start: 20121212, end: 20121212

REACTIONS (4)
  - Iritis [None]
  - Influenza like illness [None]
  - Eye swelling [None]
  - Eye pain [None]
